FAERS Safety Report 11360531 (Version 1)
Quarter: 2015Q3

REPORT INFORMATION
  Report Type: Report from Study
  Country: US (occurrence: US)
  Receive Date: 20150810
  Receipt Date: 20150810
  Transmission Date: 20151125
  Serious: No
  Sender: FDA-Public Use
  Company Number: PHEH2015US006025

PATIENT
  Age: 31 Year
  Sex: Female

DRUGS (4)
  1. EXTAVIA [Suspect]
     Active Substance: INTERFERON BETA-1B
     Dosage: 0.5 ML, QOD (WEEKS 3 TO 4: 0.125 MG )
     Route: 058
  2. EXTAVIA [Suspect]
     Active Substance: INTERFERON BETA-1B
     Dosage: 0.75 ML, QOD, (WEEKS 5 TO 6: 0.1875 MG)
     Route: 058
  3. EXTAVIA [Suspect]
     Active Substance: INTERFERON BETA-1B
     Dosage: 1 ML, QOD (WEEKS 7 AFTER : 0.25 MG)
     Route: 058
  4. EXTAVIA [Suspect]
     Active Substance: INTERFERON BETA-1B
     Indication: MULTIPLE SCLEROSIS
     Dosage: 0.25 ML, QOD, (WEEK: 1 TO 2: 0.0625 MG)
     Route: 058
     Dates: start: 20150302

REACTIONS (7)
  - Memory impairment [Unknown]
  - Pain [Unknown]
  - Migraine [Unknown]
  - Contusion [Unknown]
  - Vomiting [Unknown]
  - Injection site pain [Unknown]
  - Injection site bruising [Unknown]

NARRATIVE: CASE EVENT DATE: 20150331
